FAERS Safety Report 19077833 (Version 3)
Quarter: 2021Q2

REPORT INFORMATION
  Report Type: Report from Study
  Country: GB (occurrence: GB)
  Receive Date: 20210331
  Receipt Date: 20210619
  Transmission Date: 20210717
  Serious: Yes (Other)
  Sender: FDA-Public Use
  Company Number: NVSC2021GB069571

PATIENT
  Sex: Female

DRUGS (1)
  1. OMNITROPE [Suspect]
     Active Substance: SOMATROPIN
     Indication: GROWTH HORMONE DEFICIENCY
     Dosage: 0.6 MG, QD (PRE?FILLED PEN)
     Route: 058
     Dates: start: 20180827

REACTIONS (5)
  - Feeling abnormal [Unknown]
  - Product dose omission issue [Unknown]
  - Asthma [Unknown]
  - Arthritis [Unknown]
  - Atrial fibrillation [Unknown]
